FAERS Safety Report 21933716 (Version 1)
Quarter: 2023Q1

REPORT INFORMATION
  Report Type: Spontaneous
  Country: JP (occurrence: JP)
  Receive Date: 20230201
  Receipt Date: 20230201
  Transmission Date: 20230418
  Serious: Yes (Other)
  Sender: FDA-Public Use
  Company Number: JP-BRISTOL-MYERS SQUIBB COMPANY-BMS-2021-063093

PATIENT
  Age: 54 Year
  Sex: Male

DRUGS (2)
  1. OPDIVO [Suspect]
     Active Substance: NIVOLUMAB
     Indication: Head and neck cancer
     Dosage: 240 MG, Q2W
     Route: 041
     Dates: start: 20210401
  2. OPDIVO [Suspect]
     Active Substance: NIVOLUMAB
     Dosage: 4TH ADMINISTRATION
     Route: 041
     Dates: start: 20210608

REACTIONS (7)
  - Oedema peripheral [Recovered/Resolved]
  - Face oedema [Recovered/Resolved]
  - Weight increased [Unknown]
  - Anaemia megaloblastic [Recovered/Resolved]
  - Haemoglobin decreased [Recovered/Resolved]
  - Anaemia [Not Recovered/Not Resolved]
  - Leukaemia [Unknown]

NARRATIVE: CASE EVENT DATE: 20210608
